FAERS Safety Report 11940395 (Version 1)
Quarter: 2016Q1

REPORT INFORMATION
  Report Type: Spontaneous
  Country: US (occurrence: US)
  Receive Date: 20160122
  Receipt Date: 20160122
  Transmission Date: 20160526
  Serious: Yes (Other)
  Sender: FDA-Public Use
  Company Number: US-BRISTOL-MYERS SQUIBB COMPANY-BMS-2016-002622

PATIENT
  Age: 69 Year
  Sex: Female
  Weight: 45.81 kg

DRUGS (1)
  1. OPDIVO [Suspect]
     Active Substance: NIVOLUMAB
     Indication: LUNG NEOPLASM MALIGNANT
     Dosage: 100 MG, UNK
     Route: 065
     Dates: start: 20151110

REACTIONS (3)
  - Dyspnoea [Unknown]
  - Malignant neoplasm progression [Unknown]
  - Chest pain [Unknown]

NARRATIVE: CASE EVENT DATE: 20160105
